FAERS Safety Report 8940728 (Version 1)
Quarter: 2012Q4

REPORT INFORMATION
  Report Type: 
  Country: CA (occurrence: CA)
  Receive Date: 20121203
  Receipt Date: 20121203
  Transmission Date: 20130627
  Serious: Yes (Other)
  Sender: FDA-Public Use
  Company Number: CA-ROCHE-1162296

PATIENT
  Age: 2 Year
  Sex: Male

DRUGS (3)
  1. RITUXIMAB [Suspect]
     Indication: PROPHYLAXIS
     Route: 042
     Dates: start: 2012
  2. MYCOPHENOLATE MOFETIL [Suspect]
     Indication: PROPHYLAXIS AGAINST TRANSPLANT REJECTION
     Route: 065
  3. TACROLIMUS [Suspect]
     Indication: PROPHYLAXIS AGAINST TRANSPLANT REJECTION
     Route: 065

REACTIONS (2)
  - Hepatomegaly [Not Recovered/Not Resolved]
  - Hepatic congestion [Unknown]
